FAERS Safety Report 5571774-1 (Version None)
Quarter: 2007Q4

REPORT INFORMATION
  Report Type: 
  Country: None (occurrence: None)
  Receive Date: 20071221
  Receipt Date: 20071210
  Transmission Date: 20080405
  Serious: Yes (Hospitalization)
  Sender: FDA-Public Use
  Company Number: B0499255A

PATIENT
  Age: 71 Year
  Sex: Male

DRUGS (15)
  1. AVANDAMET [Suspect]
     Route: 048
     Dates: start: 20070101, end: 20071031
  2. LERCAN [Suspect]
     Dosage: 10MG PER DAY
     Route: 048
  3. ALLOPURINOL [Concomitant]
     Route: 048
  4. CARDENSIEL [Concomitant]
     Route: 048
  5. LASILIX [Concomitant]
     Route: 048
  6. PLAVIX [Concomitant]
     Route: 048
  7. AERIUS [Concomitant]
     Route: 048
  8. DIAMICRON [Concomitant]
     Route: 048
  9. ZOCOR [Concomitant]
     Route: 048
  10. KARDEGIC [Concomitant]
     Route: 048
  11. COAPROVEL [Concomitant]
     Route: 048
  12. POTASSIUM CHLORIDE [Concomitant]
     Route: 048
  13. LEVOTHYROX [Concomitant]
     Route: 048
  14. NOCTRAN [Concomitant]
     Route: 048
  15. METFORMIN HCL [Concomitant]
     Route: 048

REACTIONS (4)
  - CARDIAC FAILURE [None]
  - CONDITION AGGRAVATED [None]
  - OEDEMA [None]
  - ORTHOPNOEA [None]
